FAERS Safety Report 18182474 (Version 1)
Quarter: 2020Q3

REPORT INFORMATION
  Report Type: Spontaneous
  Country: US (occurrence: US)
  Receive Date: 20200821
  Receipt Date: 20200821
  Transmission Date: 20201103
  Serious: Yes (Other)
  Sender: FDA-Public Use
  Company Number: US-TEVA-2020-US-1818391

PATIENT
  Sex: Female

DRUGS (9)
  1. COPAXONE [Concomitant]
     Active Substance: GLATIRAMER ACETATE
  2. FLAX SEED [Concomitant]
     Active Substance: FLAX SEED
  3. GLUCOSAMINE [Concomitant]
     Active Substance: GLUCOSAMINE
  4. VITAMIN B12 [Concomitant]
     Active Substance: CYANOCOBALAMIN
  5. CALCIUM [Concomitant]
     Active Substance: CALCIUM
  6. AZITHROMYCIN ANHYDROUS. [Concomitant]
     Active Substance: AZITHROMYCIN ANHYDROUS
  7. SINGULAIR [Concomitant]
     Active Substance: MONTELUKAST SODIUM
  8. COPAXONE [Suspect]
     Active Substance: GLATIRAMER ACETATE
     Indication: MULTIPLE SCLEROSIS
     Route: 058
     Dates: start: 20160203
  9. AMANTADINE. [Concomitant]
     Active Substance: AMANTADINE HYDROCHLORIDE

REACTIONS (1)
  - COVID-19 [Not Recovered/Not Resolved]
